FAERS Safety Report 21408015 (Version 2)
Quarter: 2023Q1

REPORT INFORMATION
  Report Type: Spontaneous
  Country: US (occurrence: US)
  Receive Date: 20221004
  Receipt Date: 20230117
  Transmission Date: 20230417
  Serious: Yes (Other)
  Sender: FDA-Public Use
  Company Number: US-PFIZER INC-202201198237

PATIENT
  Age: 42 Year
  Sex: Female

DRUGS (2)
  1. METHOTREXATE SODIUM [Suspect]
     Active Substance: METHOTREXATE SODIUM
     Indication: Rheumatoid arthritis
     Dosage: UNK, 1X/DAY (TOOK THE MEDICATION THIS MORNING)
  2. XELJANZ [Concomitant]
     Active Substance: TOFACITINIB CITRATE
     Dosage: UNK

REACTIONS (7)
  - Anaphylactic reaction [Unknown]
  - Drug ineffective [Unknown]
  - Rash [Unknown]
  - Urticaria [Unknown]
  - Hypersensitivity [Unknown]
  - Arthritis [Unknown]
  - Arthritis [Unknown]
